FAERS Safety Report 5045592-7 (Version None)
Quarter: 2006Q3

REPORT INFORMATION
  Report Type: 
  Country: None (occurrence: None)
  Receive Date: 20060707
  Receipt Date: 20060407
  Transmission Date: 20061208
  Serious: Yes (Other)
  Sender: FDA-Public Use
  Company Number: BR-ROCHE-443808

PATIENT
  Age: 41 Year
  Sex: Male
  Weight: 85 kg

DRUGS (3)
  1. RIVOTRIL [Suspect]
     Indication: DEPRESSION
     Route: 048
     Dates: start: 19990615
  2. RIVOTRIL [Suspect]
     Route: 048
  3. FENERGAN [Concomitant]
     Route: 048
     Dates: start: 20060615, end: 20060615

REACTIONS (7)
  - BLOOD CHOLESTEROL DECREASED [None]
  - DRUG WITHDRAWAL SYNDROME [None]
  - DYSPNOEA [None]
  - HYPERHIDROSIS [None]
  - HYPOAESTHESIA [None]
  - INFARCTION [None]
  - INSOMNIA [None]
